FAERS Safety Report 14952238 (Version 3)
Quarter: 2018Q4

REPORT INFORMATION
  Report Type: Spontaneous
  Country: US (occurrence: US)
  Receive Date: 20180530
  Receipt Date: 20181121
  Transmission Date: 20190204
  Serious: No
  Sender: FDA-Public Use
  Company Number: US-PFIZER INC-2017473353

PATIENT
  Age: 53 Year
  Sex: Female
  Weight: 68.27 kg

DRUGS (10)
  1. DOCETAXEL. [Suspect]
     Active Substance: DOCETAXEL
     Indication: BREAST CANCER FEMALE
     Dosage: 130 MG, EVERY 3 WEEKS (5 CYCLES)
     Dates: start: 20130523, end: 20130815
  2. LISINOPRIL. [Concomitant]
     Active Substance: LISINOPRIL
     Dosage: UNK
     Dates: start: 20090101, end: 20141231
  3. ALOXI [Concomitant]
     Active Substance: PALONOSETRON HYDROCHLORIDE
     Dosage: UNK
  4. TAXOTERE [Concomitant]
     Active Substance: DOCETAXEL
     Indication: CHEMOTHERAPY
     Dosage: 130 MG, EVERY 3 WEEKS (6 CYCLES)
     Dates: start: 20130523, end: 20130905
  5. PARAPLATIN [Concomitant]
     Active Substance: CARBOPLATIN
     Dosage: UNK
  6. ANASTROZOL [Concomitant]
     Active Substance: ANASTROZOLE
     Indication: HORMONE THERAPY
     Dosage: UNK
     Dates: start: 20131101
  7. NEULASTA [Concomitant]
     Active Substance: PEGFILGRASTIM
     Dosage: UNK
  8. HERCEPTIN [Concomitant]
     Active Substance: TRASTUZUMAB
     Dosage: UNK
  9. DEXAMETHASONE. [Concomitant]
     Active Substance: DEXAMETHASONE
     Dosage: UNK
  10. METFORMIN [Concomitant]
     Active Substance: METFORMIN HYDROCHLORIDE
     Dosage: UNK
     Dates: start: 20080101

REACTIONS (5)
  - Hair texture abnormal [Not Recovered/Not Resolved]
  - Alopecia [Not Recovered/Not Resolved]
  - Hair disorder [Not Recovered/Not Resolved]
  - Hair colour changes [Not Recovered/Not Resolved]
  - Madarosis [Not Recovered/Not Resolved]

NARRATIVE: CASE EVENT DATE: 20140301
